FAERS Safety Report 6535124-6 (Version None)
Quarter: 2010Q1

REPORT INFORMATION
  Report Type: 
  Country: None (occurrence: None)
  Receive Date: 20100113
  Receipt Date: 20100104
  Transmission Date: 20100710
  Serious: Yes (Death)
  Sender: FDA-Public Use
  Company Number: US-BIOGENIDEC-2009BI039116

PATIENT
  Age: 64 Year
  Sex: Female

DRUGS (6)
  1. TYSABRI [Suspect]
     Indication: MULTIPLE SCLEROSIS
     Route: 042
     Dates: start: 20070703, end: 20091116
  2. GLYBURIDE [Concomitant]
  3. OXYBUTYNIN CHLORIDE [Concomitant]
  4. INSULIN [Concomitant]
  5. PRINIVIL [Concomitant]
  6. IBUPROFEN [Concomitant]

REACTIONS (1)
  - CARDIAC ARREST [None]
